FAERS Safety Report 15291604 (Version 2)
Quarter: 2018Q3

REPORT INFORMATION
  Report Type: Other
  Country: CA (occurrence: CA)
  Receive Date: 20180817
  Receipt Date: 20180824
  Transmission Date: 20181010
  Serious: Yes (Hospitalization, Other)
  Sender: FDA-Public Use
  Company Number: CA-CELLTRION INC.-2017CA015260

PATIENT

DRUGS (17)
  1. ADALIMUMAB [Suspect]
     Active Substance: ADALIMUMAB
     Indication: JUVENILE IDIOPATHIC ARTHRITIS
     Dosage: UNK
     Route: 058
  2. IMMUNOGLOBULIN                     /07494701/ [Suspect]
     Active Substance: IMMUNE GLOBULIN NOS
     Dosage: 70 G, UNK
     Route: 042
  3. INFLIXIMAB PFIZER (UNKNOWN) [Suspect]
     Active Substance: INFLIXIMAB
     Dosage: 5 MG, UNK
     Route: 065
  4. ENBREL [Suspect]
     Active Substance: ETANERCEPT
     Dosage: 12.5 MG, QWK (1 EVERY 1  WEEK)
     Route: 058
  5. HYDROXYCHLOROQUINE [Suspect]
     Active Substance: HYDROXYCHLOROQUINE
     Indication: JUVENILE IDIOPATHIC ARTHRITIS
     Dosage: 5.0 MG/KG, 1X/DAY (1 EVERY  24 HOUR(S))
     Route: 048
  6. PREDNISONE. [Suspect]
     Active Substance: PREDNISONE
     Indication: JUVENILE IDIOPATHIC ARTHRITIS
     Dosage: 3.00 MG, BID
     Route: 048
  7. ANAKINRA [Suspect]
     Active Substance: ANAKINRA
     Indication: JUVENILE IDIOPATHIC ARTHRITIS
     Dosage: 50 MG, 1X/DAY (1 EVERY 24 HOUR(S))
     Route: 058
  8. ORENCIA [Suspect]
     Active Substance: ABATACEPT
     Indication: JUVENILE IDIOPATHIC ARTHRITIS
     Dosage: 250 MG, QMO (1 EVERY 1   MONTH (S))
     Route: 042
  9. IMMUNOGLOBULIN                     /07494701/ [Suspect]
     Active Substance: IMMUNE GLOBULIN NOS
     Indication: JUVENILE IDIOPATHIC ARTHRITIS
     Dosage: 70 G, UNK
     Route: 042
  10. NAPROXEN. [Suspect]
     Active Substance: NAPROXEN
     Indication: JUVENILE IDIOPATHIC ARTHRITIS
     Dosage: UNK
     Route: 065
  11. METHOTREXATE SODIUM. [Suspect]
     Active Substance: METHOTREXATE SODIUM
     Indication: JUVENILE IDIOPATHIC ARTHRITIS
     Dosage: 15 MG, QWK
     Route: 058
  12. PREDNISONE. [Suspect]
     Active Substance: PREDNISONE
     Dosage: 5 MG, BID
     Route: 048
  13. TOCILIZUMAB. [Suspect]
     Active Substance: TOCILIZUMAB
     Indication: JUVENILE IDIOPATHIC ARTHRITIS
     Dosage: 280 MG, Q2WK
     Route: 042
  14. TRIAMCINOLONE [Suspect]
     Active Substance: TRIAMCINOLONE
     Indication: JUVENILE IDIOPATHIC ARTHRITIS
     Dosage: UNK
     Route: 065
  15. INFLIXIMAB PFIZER (UNKNOWN) [Suspect]
     Active Substance: INFLIXIMAB
     Indication: PRODUCT USED FOR UNKNOWN INDICATION
     Dosage: 3 MG, QWK
     Route: 042
  16. ENBREL [Suspect]
     Active Substance: ETANERCEPT
     Indication: JUVENILE IDIOPATHIC ARTHRITIS
     Dosage: 25 MG, Q2WK
     Route: 058
  17. SULFASALAZINE. [Suspect]
     Active Substance: SULFASALAZINE
     Indication: JUVENILE IDIOPATHIC ARTHRITIS
     Dosage: 250 MG, QD
     Route: 048

REACTIONS (21)
  - Adrenal insufficiency [Unknown]
  - Arthritis [Unknown]
  - Loss of personal independence in daily activities [Unknown]
  - Polyarthritis [Unknown]
  - Psoriasis [Unknown]
  - Body height below normal [Unknown]
  - C-reactive protein increased [Unknown]
  - Condition aggravated [Unknown]
  - Diarrhoea [Unknown]
  - Human antichimeric antibody positive [Unknown]
  - Obesity [Unknown]
  - Red blood cell sedimentation rate increased [Unknown]
  - Drug ineffective [Unknown]
  - Antibody test positive [Unknown]
  - Vomiting [Unknown]
  - Juvenile idiopathic arthritis [Unknown]
  - Wheelchair user [Unknown]
  - Bone density decreased [Unknown]
  - Septic shock [Unknown]
  - Drug intolerance [Unknown]
  - Synovitis [Unknown]
